FAERS Safety Report 17690053 (Version 3)
Quarter: 2020Q3

REPORT INFORMATION
  Report Type: Spontaneous
  Country: IT (occurrence: IT)
  Receive Date: 20200421
  Receipt Date: 20200716
  Transmission Date: 20201102
  Serious: Yes (Hospitalization)
  Sender: FDA-Public Use
  Company Number: IT-AKCEA THERAPEUTICS-2020IS001148

PATIENT

DRUGS (1)
  1. TEGSEDI [Suspect]
     Active Substance: INOTERSEN SODIUM
     Indication: FAMILIAL AMYLOIDOSIS
     Dosage: 284 MG, QW
     Route: 058
     Dates: start: 20191127, end: 20200401

REACTIONS (4)
  - Proteinuria [Not Recovered/Not Resolved]
  - Glomerulonephritis acute [Recovering/Resolving]
  - Oedema [Recovering/Resolving]
  - Nephrotic syndrome [Recovering/Resolving]

NARRATIVE: CASE EVENT DATE: 20200401
